FAERS Safety Report 9105121 (Version 2)
Quarter: 2013Q1

REPORT INFORMATION
  Report Type: Spontaneous
  Country: JP (occurrence: JP)
  Receive Date: 20130219
  Receipt Date: 20130225
  Transmission Date: 20140127
  Serious: Yes (Hospitalization)
  Sender: FDA-Public Use
  Company Number: JP-ROCHE-1190444

PATIENT
  Age: 31 Year
  Sex: Male

DRUGS (6)
  1. ROHYPNOL [Suspect]
     Indication: PRODUCT USED FOR UNKNOWN INDICATION
     Route: 048
  2. LAMOTRIGINE [Suspect]
     Indication: PRODUCT USED FOR UNKNOWN INDICATION
     Route: 048
  3. DIAZEPAM [Suspect]
     Indication: PRODUCT USED FOR UNKNOWN INDICATION
     Route: 048
  4. NITRAZEPAM [Suspect]
     Indication: PRODUCT USED FOR UNKNOWN INDICATION
     Route: 048
  5. CARBAMAZEPINE [Concomitant]
  6. ZONISAMIDE [Concomitant]

REACTIONS (4)
  - Altered state of consciousness [Unknown]
  - Rhabdomyolysis [Unknown]
  - Drug eruption [Unknown]
  - Overdose [Unknown]
